FAERS Safety Report 24652616 (Version 2)
Quarter: 2024Q4

REPORT INFORMATION
  Report Type: Spontaneous
  Country: US (occurrence: US)
  Receive Date: 20241122
  Receipt Date: 20241209
  Transmission Date: 20250115
  Serious: No
  Sender: ROCHE
  Company Number: US-ROCHE-10000137914

PATIENT

DRUGS (1)
  1. PHESGO [Suspect]
     Active Substance: HYALURONIDASE-ZZXF\PERTUZUMAB\TRASTUZUMAB
     Indication: Breast cancer
     Dosage: INJECTION
     Route: 065

REACTIONS (1)
  - Pruritus [Recovered/Resolved]
